FAERS Safety Report 8802116 (Version 3)
Quarter: 2013Q2

REPORT INFORMATION
  Report Type: Spontaneous
  Country: US (occurrence: US)
  Receive Date: 20120921
  Receipt Date: 20130419
  Transmission Date: 20140414
  Serious: Yes (Hospitalization)
  Sender: FDA-Public Use
  Company Number: US-BAYER-2012-098189

PATIENT
  Age: 26 Year
  Sex: Female
  Weight: 83.72 kg

DRUGS (3)
  1. YAZ [Suspect]
     Dosage: UNK
     Dates: start: 2005, end: 200909
  2. YASMIN [Suspect]
  3. OCELLA [Suspect]

REACTIONS (2)
  - Renal infarct [None]
  - Injury [None]
